FAERS Safety Report 8984294 (Version 1)
Quarter: 2012Q4

REPORT INFORMATION
  Report Type: Spontaneous
  Country: US (occurrence: None)
  Receive Date: 20121214
  Receipt Date: 20121214
  Transmission Date: 20130627
  Serious: Yes (Other)
  Sender: FDA-Public Use
  Company Number: US-DEXPHARM-20121755

PATIENT
  Sex: Female
  Weight: 49.89 kg

DRUGS (2)
  1. OMEPRAZOLE DELAYED-RELEASE [Suspect]
     Indication: ACID REFLUX (OESOPHAGEAL)
     Route: 048
     Dates: start: 2010
  2. LISINOPRIL [Concomitant]

REACTIONS (10)
  - Drug dose omission [None]
  - Fall [None]
  - Muscle spasms [None]
  - Head injury [None]
  - Cervical vertebral fracture [None]
  - Gastrooesophageal reflux disease [None]
  - Condition aggravated [None]
  - Sensation of foreign body [None]
  - Ear pain [None]
  - Dysphagia [None]
